FAERS Safety Report 5076591-7 (Version None)
Quarter: 2006Q3

REPORT INFORMATION
  Report Type: 
  Country: None (occurrence: None)
  Receive Date: 20060725
  Receipt Date: 20060306
  Transmission Date: 20061208
  Serious: No
  Sender: FDA-Public Use
  Company Number: 200611347BWH

PATIENT
  Age: 60 Year
  Sex: Male
  Weight: 89.8122 kg

DRUGS (3)
  1. NEXAVAR [Suspect]
     Indication: RENAL CELL CARCINOMA STAGE UNSPECIFIED
     Dosage: 400 MG, BID, ORAL
     Route: 048
     Dates: start: 20060301
  2. LOTREL [Concomitant]
  3. ACTOPLUS MET [Concomitant]

REACTIONS (10)
  - ABDOMINAL PAIN [None]
  - ALOPECIA [None]
  - ASTHENIA [None]
  - BLISTER [None]
  - DIARRHOEA [None]
  - DRY SKIN [None]
  - FLUSHING [None]
  - HYPERKERATOSIS [None]
  - RASH [None]
  - SKIN EXFOLIATION [None]
